FAERS Safety Report 6601511-0 (Version None)
Quarter: 2010Q1

REPORT INFORMATION
  Report Type: 
  Country: None (occurrence: None)
  Receive Date: 20100225
  Receipt Date: 20100212
  Transmission Date: 20100710
  Serious: Yes (Hospitalization)
  Sender: FDA-Public Use
  Company Number: DE-PFIZER INC-2009235760

PATIENT
  Age: 54 Year
  Sex: Male
  Weight: 75 kg

DRUGS (4)
  1. SUNITINIB MALATE [Suspect]
     Indication: PANCREATIC CARCINOMA
     Dosage: 50 MG, DAILY
     Route: 048
     Dates: start: 20090723
  2. GEMCITABINE [Suspect]
     Indication: PANCREATIC CARCINOMA
     Dosage: 1926 MG, INTERVAL: D1,D8
     Route: 042
     Dates: start: 20090123
  3. VALSARTAN [Concomitant]
     Dosage: UNK
     Dates: start: 20090522
  4. METOCLOPRAMIDE HYDROCHLORIDE [Concomitant]
     Dosage: UNK
     Dates: start: 20090619

REACTIONS (4)
  - NAUSEA [None]
  - OEDEMA PERIPHERAL [None]
  - PERIPHERAL VASCULAR DISORDER [None]
  - VOMITING [None]
